FAERS Safety Report 6876369-5 (Version None)
Quarter: 2010Q3

REPORT INFORMATION
  Report Type: 
  Country: None (occurrence: None)
  Receive Date: 20100727
  Receipt Date: 20100723
  Transmission Date: 20110219
  Serious: Yes (Death)
  Sender: FDA-Public Use
  Company Number: TR-BAYER-201033730GPV

PATIENT
  Age: 48 Year
  Sex: Male

DRUGS (2)
  1. MAGNEVIST [Suspect]
     Indication: NUCLEAR MAGNETIC RESONANCE IMAGING
     Dosage: TOTAL DAILY DOSE: 10 ML
     Route: 042
     Dates: start: 20100717, end: 20100717
  2. PROPOFOL [Concomitant]
     Indication: ANAESTHESIA
     Dates: start: 20100717, end: 20100717

REACTIONS (1)
  - DEATH [None]
